FAERS Safety Report 9011313 (Version 2)
Quarter: 2013Q4

REPORT INFORMATION
  Report Type: Spontaneous
  Country: GB (occurrence: GB)
  Receive Date: 20130109
  Receipt Date: 20131011
  Transmission Date: 20140711
  Serious: Yes (Hospitalization)
  Sender: FDA-Public Use
  Company Number: GB-WATSON-2012-23404

PATIENT
  Age: 79 Year
  Sex: 0

DRUGS (5)
  1. CO-AMOXICLAV [Suspect]
     Indication: OTITIS EXTERNA
     Dosage: 625 MG, TID
     Route: 048
     Dates: start: 20110204, end: 20110211
  2. PHENOXYMETHYLPENICILLIN (UNKNOWN) [Suspect]
     Indication: PRODUCT USED FOR UNKNOWN INDICATION
     Dosage: 500 MG, QID
     Route: 048
     Dates: start: 20100917
  3. FLUCLOXACILLIN (UNKNOWN) [Suspect]
     Indication: PRODUCT USED FOR UNKNOWN INDICATION
     Dosage: 500 MG, QID
     Route: 065
     Dates: start: 20100917, end: 20100923
  4. METRONIDAZOLE (UNKNOWN) [Suspect]
     Indication: PRODUCT USED FOR UNKNOWN INDICATION
     Dosage: UNK
     Route: 048
     Dates: start: 20100406
  5. PIPERACILLIN-TAZOBACTAM (UNKNOWN) [Suspect]
     Indication: PRODUCT USED FOR UNKNOWN INDICATION
     Dosage: 4.5 G, TID
     Route: 041
     Dates: start: 20110421, end: 20110427

REACTIONS (1)
  - Clostridium difficile infection [Recovered/Resolved]
